FAERS Safety Report 14057020 (Version 1)
Quarter: 2017Q4

REPORT INFORMATION
  Report Type: Report from Study
  Country: US (occurrence: US)
  Receive Date: 20171006
  Receipt Date: 20171006
  Transmission Date: 20180321
  Serious: Yes (Hospitalization)
  Sender: FDA-Public Use
  Company Number: PHHO2013US007137

PATIENT
  Age: 48 Year
  Sex: Male
  Weight: 73.56 kg

DRUGS (22)
  1. COSENTYX [Suspect]
     Active Substance: SECUKINUMAB
     Indication: PSORIASIS
     Dosage: 150 MG, UNK
     Route: 058
     Dates: start: 20120716, end: 20130422
  2. TRAMADOL. [Concomitant]
     Active Substance: TRAMADOL
     Indication: BURSITIS
     Dosage: 50 MG, PRN
     Route: 048
     Dates: start: 20120828
  3. FLUOXETINE [Concomitant]
     Active Substance: FLUOXETINE HYDROCHLORIDE
     Indication: DEPRESSION
     Dosage: 20 MG, QD
     Route: 048
     Dates: start: 20120917, end: 20130517
  4. LUNESTA [Concomitant]
     Active Substance: ESZOPICLONE
     Indication: INSOMNIA
     Dosage: 2 MG, QHS
     Route: 048
     Dates: start: 20130218, end: 20130323
  5. COSENTYX [Suspect]
     Active Substance: SECUKINUMAB
     Dosage: 150 MG, UNK
     Route: 058
     Dates: start: 20130617, end: 20130617
  6. TRAMADOL. [Concomitant]
     Active Substance: TRAMADOL
     Indication: PAIN IN EXTREMITY
     Dosage: 50 MG, PRN
     Route: 048
     Dates: start: 20120724, end: 20120820
  7. MORPHINE [Concomitant]
     Active Substance: MORPHINE
     Indication: NON-CARDIAC CHEST PAIN
     Dosage: 4 MG, QD
     Route: 042
     Dates: start: 20121112, end: 20121112
  8. MARCAINE [Concomitant]
     Active Substance: BUPIVACAINE HYDROCHLORIDE
     Indication: BURSITIS
     Dosage: 1 CCX1
     Route: 014
     Dates: start: 20120827, end: 20120827
  9. MUCINEX FAST MAX COLD, FLU AND SORE THROAT [Concomitant]
     Dosage: 20 ML, PRN
     Route: 048
     Dates: start: 20130405, end: 20130412
  10. MORPHINE [Concomitant]
     Active Substance: MORPHINE
     Indication: GASTROOESOPHAGEAL REFLUX DISEASE
  11. OMEPRAZOLE. [Concomitant]
     Active Substance: OMEPRAZOLE
     Indication: GASTROOESOPHAGEAL REFLUX DISEASE
     Dosage: 10 MG, QD
     Route: 048
     Dates: start: 20121113
  12. IBUPROFEN. [Concomitant]
     Active Substance: IBUPROFEN
     Indication: OSTEOARTHRITIS
     Dosage: 800 MG, PRN
     Route: 048
     Dates: start: 20130103
  13. DEPO-MEDROL [Concomitant]
     Active Substance: METHYLPREDNISOLONE ACETATE
     Indication: BURSITIS
     Dosage: 0.25CCX1
     Route: 014
     Dates: start: 20120827, end: 20120827
  14. IBUPROFEN. [Concomitant]
     Active Substance: IBUPROFEN
     Indication: BURSITIS
  15. DEXAMETHASONE. [Concomitant]
     Active Substance: DEXAMETHASONE
     Indication: BURSITIS
     Dosage: 1CCX1
     Route: 014
     Dates: start: 20120827, end: 20120827
  16. TRAMADOL. [Concomitant]
     Active Substance: TRAMADOL
     Indication: OSTEOARTHRITIS
     Dosage: 50 MG, PRN
     Route: 048
  17. ASPIRIN. [Concomitant]
     Active Substance: ASPIRIN
     Indication: NON-CARDIAC CHEST PAIN
     Dosage: 325 MG, QD
     Route: 048
     Dates: start: 20121112, end: 20121112
  18. PEPCID [Concomitant]
     Active Substance: FAMOTIDINE
     Indication: GASTROOESOPHAGEAL REFLUX DISEASE
     Dosage: 20 MG, QD
     Route: 048
     Dates: start: 20121112, end: 20121112
  19. FAMODITINE [Concomitant]
     Indication: GASTROOESOPHAGEAL REFLUX DISEASE
     Dosage: 20 MG, PRN
     Route: 048
  20. LIDOCAINE. [Concomitant]
     Active Substance: LIDOCAINE
     Indication: BURSITIS
     Dosage: 1 CCX1
     Route: 014
     Dates: start: 20120827, end: 20120827
  21. MUCINEX FAST MAX COLD, FLU AND SORE THROAT [Concomitant]
     Indication: UPPER RESPIRATORY TRACT INFECTION
     Dosage: 20 ML, PRN
     Route: 048
     Dates: start: 20121010, end: 20121012
  22. LASIX [Concomitant]
     Active Substance: FUROSEMIDE
     Indication: OEDEMA
     Dosage: 40 MG, QD
     Route: 048
     Dates: start: 20121212, end: 20121212

REACTIONS (2)
  - Sepsis [Recovered/Resolved]
  - Cellulitis [Recovered/Resolved]

NARRATIVE: CASE EVENT DATE: 20130513
